FAERS Safety Report 8173618-0 (Version None)
Quarter: 2012Q1

REPORT INFORMATION
  Report Type: 
  Country: None (occurrence: None)
  Receive Date: 20120227
  Receipt Date: 20120217
  Transmission Date: 20120608
  Serious: Yes (Other)
  Sender: FDA-Public Use
  Company Number: ADR-2012-00391

PATIENT
  Age: 54 Year
  Sex: Male

DRUGS (2)
  1. LIORESAL [Suspect]
     Indication: MUSCLE SPASTICITY
  2. LIORESAL [Suspect]
     Indication: MULTIPLE SCLEROSIS

REACTIONS (6)
  - DRUG WITHDRAWAL SYNDROME [None]
  - BACTERIAL TEST POSITIVE [None]
  - WOUND DEHISCENCE [None]
  - IMPLANT SITE INFECTION [None]
  - WOUND INFECTION [None]
  - DEVICE LEAKAGE [None]
